FAERS Safety Report 14215799 (Version 1)
Quarter: 2017Q4

REPORT INFORMATION
  Report Type: Report from Study
  Country: US (occurrence: BR)
  Receive Date: 20171122
  Receipt Date: 20171122
  Transmission Date: 20180321
  Serious: Yes (Hospitalization, Other)
  Sender: FDA-Public Use
  Company Number: US-SUNOVION-2017SUN004985

PATIENT
  Age: 85 Year
  Sex: Male
  Weight: 80 kg

DRUGS (3)
  1. INDACATEROL AND GLYCOPYRROLATE [Suspect]
     Active Substance: GLYCOPYRROLATE\INDACATEROL MALEATE
     Dosage: 1 (GLYCOPYRRONIUM BROMIDE 50 UG/INDACTEROL 110 UG),, UNK
     Route: 055
     Dates: start: 201707
  2. SERETIDE [Concomitant]
     Active Substance: FLUTICASONE PROPIONATE\SALMETEROL XINAFOATE
  3. INDACATEROL AND GLYCOPYRROLATE [Suspect]
     Active Substance: GLYCOPYRROLATE\INDACATEROL MALEATE
     Indication: CHRONIC OBSTRUCTIVE PULMONARY DISEASE
     Dosage: 1 (GLYCOPYRRONIUM BROMIDE 50 UG/INDACTEROL 110 UG), QD
     Route: 055

REACTIONS (3)
  - Chronic obstructive pulmonary disease [Unknown]
  - Cough [Unknown]
  - Choking [Unknown]

NARRATIVE: CASE EVENT DATE: 201701
